FAERS Safety Report 4519382-5 (Version None)
Quarter: 2004Q4

REPORT INFORMATION
  Report Type: 
  Country: None (occurrence: None)
  Receive Date: 20041206
  Receipt Date: 20041119
  Transmission Date: 20050328
  Serious: Yes (Hospitalization)
  Sender: FDA-Public Use
  Company Number: 2004-BP-12174RO

PATIENT
  Age: 46 Year
  Sex: Male

DRUGS (5)
  1. PSEUDOEPHEDRINE (PSEUDOEPHEDRINE) [Suspect]
     Dosage: 240 MG /DAY (30 MG), PO
     Route: 048
  2. TRAMADOL HCL [Suspect]
     Indication: BACK PAIN
     Dosage: 150 MG, PO
     Route: 048
  3. DEXTROMETHORPHAN (DEXTROMETHORPHAN) [Suspect]
     Dosage: 80 MG/DAY (10 MG), PO
     Route: 048
  4. GUAIFENESIN (GUAIFENESIN) [Suspect]
     Dosage: 800 MG/DAY (100 MG), PO
     Route: 048
  5. ACETAMINOPHEN [Suspect]
     Dosage: 2000 MG/DAY (250 MG), PO
     Route: 048

REACTIONS (14)
  - ABDOMINAL PAIN [None]
  - BOWEL MOVEMENT IRREGULARITY [None]
  - COLITIS ISCHAEMIC [None]
  - DIZZINESS [None]
  - ERYTHEMA [None]
  - GASTROENTERITIS HELICOBACTER [None]
  - GASTROINTESTINAL OEDEMA [None]
  - HAEMATOCHEZIA [None]
  - HYPERHIDROSIS [None]
  - INTESTINAL STENOSIS [None]
  - LOOSE STOOLS [None]
  - NAUSEA [None]
  - NECROSIS [None]
  - SLEEP DISORDER DUE TO GENERAL MEDICAL CONDITION, INSOMNIA TYPE [None]
